FAERS Safety Report 4984339-7 (Version None)
Quarter: 2006Q2

REPORT INFORMATION
  Report Type: 
  Country: None (occurrence: None)
  Receive Date: 20060427
  Receipt Date: 20060410
  Transmission Date: 20061013
  Serious: Yes (Hospitalization)
  Sender: FDA-Public Use
  Company Number: JP-BRISTOL-MYERS SQUIBB COMPANY-13345178

PATIENT
  Age: 88 Year
  Sex: Female

DRUGS (2)
  1. GATIFLOXACIN [Suspect]
     Indication: PYREXIA
     Route: 048
  2. FLOMOX [Concomitant]

REACTIONS (2)
  - HYPERGLYCAEMIA [None]
  - RENAL FAILURE ACUTE [None]
